FAERS Safety Report 7415406-6 (Version None)
Quarter: 2011Q2

REPORT INFORMATION
  Report Type: 
  Country: None (occurrence: None)
  Receive Date: 20110414
  Receipt Date: 20110406
  Transmission Date: 20111010
  Serious: Yes (Hospitalization)
  Sender: FDA-Public Use
  Company Number: B0712665A

PATIENT
  Age: 56 Year
  Sex: Female

DRUGS (6)
  1. ASPIRIN [Suspect]
     Indication: PRODUCT USED FOR UNKNOWN INDICATION
     Route: 048
     Dates: start: 20110224, end: 20110226
  2. FEMOSTON [Concomitant]
  3. VALTREX [Suspect]
     Indication: PRODUCT USED FOR UNKNOWN INDICATION
     Dosage: 1000MG THREE TIMES PER DAY
     Route: 048
     Dates: start: 20110214, end: 20110221
  4. CALCIMAGON [Concomitant]
  5. PONSTAN [Suspect]
     Indication: PRODUCT USED FOR UNKNOWN INDICATION
     Dosage: 500MG THREE TIMES PER DAY
     Route: 048
     Dates: start: 20110214, end: 20110221
  6. CETIRIZINE HCL [Concomitant]

REACTIONS (2)
  - PANCREATITIS ACUTE [None]
  - ABDOMINAL PAIN [None]
